FAERS Safety Report 15089279 (Version 1)
Quarter: 2018Q2

REPORT INFORMATION
  Report Type: Spontaneous
  Country: DK (occurrence: DK)
  Receive Date: 20180629
  Receipt Date: 20180629
  Transmission Date: 20180711
  Serious: Yes (Hospitalization, Other)
  Sender: FDA-Public Use
  Company Number: DK-AMGEN-DNKSP2018085199

PATIENT
  Age: 71 Year
  Sex: Female

DRUGS (11)
  1. BONDRONAT [Suspect]
     Active Substance: IBANDRONIC ACID
     Indication: BLOOD CALCIUM INCREASED
     Dosage: 50 MG, UNK
     Route: 048
  2. TRAMADOL. [Concomitant]
     Active Substance: TRAMADOL
     Indication: PAIN
     Dosage: 50 MG, AS NECESSARY (1 TABLET AS NEEDED, MAXIMUM 3 TIME A DAILY)
     Route: 048
  3. LORAZEPAM ORION [Concomitant]
     Indication: NAUSEA
     Dosage: 1 MG, (1 TABLET AS NEEDED MAXIMUM 3 TIMES A DAY)
     Route: 048
  4. IBUPROFEN. [Concomitant]
     Active Substance: IBUPROFEN
     Indication: PAIN
     Dosage: 400 MG, (1 TABLET AS NEEDED MAXIMUM 3 TIMES A DAY)
     Route: 048
  5. DOMPERIDON [Concomitant]
     Active Substance: DOMPERIDONE
     Indication: NAUSEA
     Dosage: 10 MG, AS(1 TABLET AS NEEDED, MAXIMUM 3 TIMES A DAY)
     Route: 048
  6. CALCIUM VITAMIN D [Concomitant]
     Active Substance: CALCIUM\VITAMIN D
     Indication: VITAMIN SUPPLEMENTATION
     Dosage: UNK DF, UNK
     Route: 048
     Dates: start: 20151124
  7. XGEVA [Suspect]
     Active Substance: DENOSUMAB
     Indication: BLOOD CALCIUM INCREASED
     Dosage: 120 MG (1.7ML), UNK
     Route: 058
     Dates: start: 20150216, end: 201708
  8. MORPHINE [Concomitant]
     Active Substance: MORPHINE
     Indication: PAIN
     Dosage: 10 MG, (1/2 TABLETS AS NEEDED MAXIUMU 6 TIMES A DAY)
     Route: 048
  9. VINORELBINE [Concomitant]
     Active Substance: VINORELBINE\VINORELBINE TARTRATE
     Indication: PRODUCT USED FOR UNKNOWN INDICATION
     Dosage: 10 MG/ML, UNK
     Route: 042
  10. PREDNISOLONE. [Concomitant]
     Active Substance: PREDNISOLONE
     Indication: ADVERSE DRUG REACTION
     Dosage: 50 MG, QD
     Route: 048
     Dates: start: 20161018
  11. PARACETAMOL [Concomitant]
     Active Substance: ACETAMINOPHEN
     Indication: PAIN
     Dosage: 500 MG, AS NECESSARY (2 TABLETS AS NEEDED , MAXIMUM 4 TIMES A DAY)
     Route: 048

REACTIONS (2)
  - Osteonecrosis of jaw [Not Recovered/Not Resolved]
  - Jaw operation [Not Recovered/Not Resolved]

NARRATIVE: CASE EVENT DATE: 20180126
